FAERS Safety Report 4295915-1 (Version None)
Quarter: 2004Q1

REPORT INFORMATION
  Report Type: 
  Country: None (occurrence: None)
  Receive Date: 20040216
  Receipt Date: 20031205
  Transmission Date: 20041129
  Serious: No
  Sender: FDA-Public Use
  Company Number: US-GLAXOSMITHKLINE-A0442161A

PATIENT
  Age: 55 Year
  Sex: Male

DRUGS (3)
  1. LAMICTAL [Suspect]
     Indication: BIPOLAR DISORDER
     Dosage: 200MG TWICE PER DAY
     Route: 048
  2. NEURONTIN [Concomitant]
  3. VALIUM [Concomitant]

REACTIONS (3)
  - IRRITABILITY [None]
  - PRURITUS [None]
  - RASH [None]
